FAERS Safety Report 17663936 (Version 3)
Quarter: 2020Q2

REPORT INFORMATION
  Report Type: Report from Study
  Country: None (occurrence: ES)
  Receive Date: 20200414
  Receipt Date: 20200623
  Transmission Date: 20200713
  Serious: Yes (Death, Hospitalization, Other)
  Sender: FDA-Public Use
  Company Number: ES-ABBVIE-20K-144-3358094-00

PATIENT
  Age: 77 Year
  Sex: Female

DRUGS (1)
  1. DUODOPA [Suspect]
     Active Substance: CARBIDOPA\LEVODOPA
     Indication: PARKINSON^S DISEASE
     Route: 050
     Dates: start: 20080626

REACTIONS (9)
  - Sepsis [Fatal]
  - Weight decreased [Recovering/Resolving]
  - Fluid intake reduced [Unknown]
  - Multiple organ dysfunction syndrome [Fatal]
  - Disorientation [Unknown]
  - Infection [Fatal]
  - Dizziness [Unknown]
  - Pyelonephritis [Not Recovered/Not Resolved]
  - Decreased appetite [Recovering/Resolving]

NARRATIVE: CASE EVENT DATE: 202004
